FAERS Safety Report 8167804-3 (Version None)
Quarter: 2012Q1

REPORT INFORMATION
  Report Type: 
  Country: None (occurrence: None)
  Receive Date: 20120227
  Receipt Date: 20120213
  Transmission Date: 20120608
  Serious: Yes (Hospitalization)
  Sender: FDA-Public Use
  Company Number: US-ROCHE-1039863

PATIENT
  Age: 47 Year
  Sex: Female

DRUGS (4)
  1. HERCEPTIN [Suspect]
     Indication: BREAST CANCER
     Route: 042
  2. TAXOTERE [Concomitant]
     Indication: BREAST CANCER
  3. CARBOPLATIN [Concomitant]
     Indication: BREAST CANCER
  4. OXYCONTIN [Suspect]
     Indication: PRODUCT USED FOR UNKNOWN INDICATION

REACTIONS (5)
  - OESOPHAGEAL PAIN [None]
  - PRURITUS GENERALISED [None]
  - OESOPHAGEAL SPASM [None]
  - URTICARIA [None]
  - SENSATION OF FOREIGN BODY [None]
